FAERS Safety Report 17679417 (Version 1)
Quarter: 2020Q2

REPORT INFORMATION
  Report Type: Spontaneous
  Country: US (occurrence: US)
  Receive Date: 20200417
  Receipt Date: 20200417
  Transmission Date: 20200714
  Serious: Yes (Other)
  Sender: FDA-Public Use
  Company Number: NVSC2020US103167

PATIENT
  Age: 71 Year
  Sex: Female
  Weight: 55.78 kg

DRUGS (2)
  1. IBANDRONATE SODIUM. [Concomitant]
     Active Substance: IBANDRONATE SODIUM
     Indication: OSTEOPOROSIS
     Dosage: 150 UNK, QMO
     Route: 065
     Dates: start: 20200401
  2. COMBIPATCH [Suspect]
     Active Substance: ESTRADIOL\NORETHINDRONE ACETATE
     Indication: OESTROGEN THERAPY
     Dosage: 0.05/0.25 MG
     Route: 062
     Dates: start: 20200409, end: 20200409

REACTIONS (6)
  - Hallucination [Recovered/Resolved]
  - Stupor [Not Recovered/Not Resolved]
  - Drug hypersensitivity [Recovered/Resolved]
  - Off label use [Recovered/Resolved]
  - Fatigue [Not Recovered/Not Resolved]
  - Cataplexy [Unknown]

NARRATIVE: CASE EVENT DATE: 20200409
